FAERS Safety Report 17778459 (Version 4)
Quarter: 2020Q3

REPORT INFORMATION
  Report Type: Report from Study
  Country: US (occurrence: US)
  Receive Date: 20200514
  Receipt Date: 20200828
  Transmission Date: 20201102
  Serious: No
  Sender: FDA-Public Use
  Company Number: NVSC2020US130255

PATIENT
  Age: 67 Year
  Sex: Male

DRUGS (4)
  1. ENTRESTO [Suspect]
     Active Substance: SACUBITRIL\VALSARTAN
     Dosage: 100 MG ( (49/51MG), BID
     Route: 048
     Dates: start: 20200822
  2. ENTRESTO [Suspect]
     Active Substance: SACUBITRIL\VALSARTAN
     Indication: CARDIAC FAILURE
     Dosage: 100 MG ( (49/51MG), BID
     Route: 048
     Dates: start: 20200409
  3. LEXAPRO [Suspect]
     Active Substance: ESCITALOPRAM OXALATE
     Indication: ANXIETY
     Dosage: 10 MG
     Route: 065
     Dates: start: 202008
  4. ENTRESTO [Suspect]
     Active Substance: SACUBITRIL\VALSARTAN
     Dosage: 100 MG ( (49/51MG), BID
     Route: 048
     Dates: start: 20200813

REACTIONS (7)
  - Hyperhidrosis [Unknown]
  - Weight increased [Unknown]
  - Product dose omission issue [Unknown]
  - Chest discomfort [Unknown]
  - Anxiety [Unknown]
  - Hypotension [Unknown]
  - Hypersomnia [Unknown]

NARRATIVE: CASE EVENT DATE: 20200509
